FAERS Safety Report 5488790-0 (Version None)
Quarter: 2007Q4

REPORT INFORMATION
  Report Type: 
  Country: None (occurrence: None)
  Receive Date: 20071017
  Receipt Date: 20071010
  Transmission Date: 20080405
  Serious: Yes (Other)
  Sender: FDA-Public Use
  Company Number: CH-MERCK-0710CHE00018

PATIENT
  Age: 43 Year
  Sex: Male

DRUGS (5)
  1. CANCIDAS [Suspect]
     Indication: ASPERGILLOSIS
     Route: 042
  2. CANCIDAS [Suspect]
     Route: 042
  3. CORTICOSTEROIDS (UNSPECIFIED) [Concomitant]
     Indication: HEPATITIS ACUTE
     Route: 065
  4. VORICONAZOLE [Concomitant]
     Indication: ASPERGILLOSIS
     Route: 048
  5. VORICONAZOLE [Concomitant]
     Route: 048

REACTIONS (1)
  - EPILEPSY [None]
